FAERS Safety Report 5809370-0 (Version None)
Quarter: 2008Q3

REPORT INFORMATION
  Report Type: 
  Country: None (occurrence: None)
  Receive Date: 20080714
  Receipt Date: 20080704
  Transmission Date: 20090109
  Serious: Yes (Hospitalization)
  Sender: FDA-Public Use
  Company Number: PHHY2008JP08665

PATIENT
  Sex: Male
  Weight: 59 kg

DRUGS (2)
  1. TEGRETOL [Suspect]
     Indication: AGGRESSION
     Dosage: 100 MG, TID
     Route: 048
     Dates: start: 20070920, end: 20071010
  2. TEGRETOL [Suspect]
     Indication: AGITATION

REACTIONS (9)
  - DIABETES MELLITUS [None]
  - DRUG RASH WITH EOSINOPHILIA AND SYSTEMIC SYMPTOMS [None]
  - ERYTHEMA [None]
  - HYPERGLYCAEMIA [None]
  - LYMPHOCYTE STIMULATION TEST [None]
  - PYREXIA [None]
  - RASH [None]
  - SKIN EXFOLIATION [None]
  - URINE KETONE BODY PRESENT [None]
